FAERS Safety Report 6182603-X (Version None)
Quarter: 2009Q2

REPORT INFORMATION
  Report Type: 
  Country: None (occurrence: None)
  Receive Date: 20090507
  Receipt Date: 20090429
  Transmission Date: 20091009
  Serious: Yes (Hospitalization)
  Sender: FDA-Public Use
  Company Number: PHHY2009DE17026

PATIENT
  Age: 69 Year
  Sex: Male

DRUGS (4)
  1. CARBAMAZEPINE [Suspect]
     Dosage: 150 MG, TID
     Route: 048
     Dates: start: 20090324
  2. CARBAMAZEPINE [Suspect]
     Dosage: 200 MG, TID
     Route: 048
     Dates: end: 20090408
  3. SIMVASTATIN [Concomitant]
     Dosage: 20 MG
  4. ASPIRIN [Concomitant]

REACTIONS (4)
  - DRUG RASH WITH EOSINOPHILIA AND SYSTEMIC SYMPTOMS [None]
  - PYREXIA [None]
  - RASH MACULO-PAPULAR [None]
  - TRANSAMINASES INCREASED [None]
